FAERS Safety Report 8419532-4 (Version None)
Quarter: 2012Q2

REPORT INFORMATION
  Report Type: 
  Country: None (occurrence: None)
  Receive Date: 20120607
  Receipt Date: 20120117
  Transmission Date: 20120825
  Serious: No
  Sender: FDA-Public Use
  Company Number: US-BRISTOL-MYERS SQUIBB COMPANY-16328726

PATIENT
  Age: 48 Year
  Sex: Male

DRUGS (2)
  1. SUSTIVA [Suspect]
     Indication: HIV INFECTION
     Dates: end: 20120101
  2. VIDEX [Suspect]
     Indication: HIV INFECTION
     Dates: end: 20120101

REACTIONS (1)
  - RENAL IMPAIRMENT [None]
